FAERS Safety Report 8533755-5 (Version None)
Quarter: 2012Q3

REPORT INFORMATION
  Report Type: 
  Country: None (occurrence: None)
  Receive Date: 20120711
  Receipt Date: 20120705
  Transmission Date: 20120928
  Serious: Yes (Hospitalization)
  Sender: FDA-Public Use
  Company Number: USA/USA/12/0024869

PATIENT
  Age: 80 Year
  Sex: Male
  Weight: 92.0802 kg

DRUGS (9)
  1. CRESTOR [Concomitant]
  2. MULTIVITAMIN [Concomitant]
  3. OMEPRAZOLE MAGNESIUM [Suspect]
     Indication: DYSPEPSIA
     Dosage: 20.6 MG, 1 IN 1 D, ORAL
     Route: 048
     Dates: start: 20120620
  4. BUDESONIDE [Concomitant]
  5. FISH OIL (FISH OIL) [Concomitant]
  6. NORVASC [Concomitant]
  7. COQ10 (BUIDECARENONE) [Concomitant]
  8. ZETIA [Concomitant]
  9. PROPRANOLOL [Concomitant]

REACTIONS (2)
  - DRUG INEFFECTIVE [None]
  - PRODUCT QUALITY ISSUE [None]
